FAERS Safety Report 21508196 (Version 1)
Quarter: 2022Q4

REPORT INFORMATION
  Report Type: Spontaneous
  Country: CN (occurrence: CN)
  Receive Date: 20221026
  Receipt Date: 20221026
  Transmission Date: 20230113
  Serious: Yes (Hospitalization, Other)
  Sender: FDA-Public Use
  Company Number: CN-009507513-2210CHN008762

PATIENT
  Age: 60 Year
  Sex: Female

DRUGS (2)
  1. KEYTRUDA [Suspect]
     Active Substance: PEMBROLIZUMAB
     Indication: Endometrial adenocarcinoma
     Dosage: 200 MILLIGRAM, Q3W (1/21 DAYS)
     Route: 041
     Dates: start: 20220601, end: 20220924
  2. LINAGLIPTIN [Concomitant]
     Active Substance: LINAGLIPTIN
     Indication: Type 2 diabetes mellitus
     Dosage: 5 MILLIGRAM, QD
     Route: 048

REACTIONS (10)
  - Renal impairment [Unknown]
  - Hepatic function abnormal [Unknown]
  - Amylase increased [Unknown]
  - Lipase increased [Unknown]
  - Hydronephrosis [Unknown]
  - Hepatic lesion [Unknown]
  - Hepatic cyst [Unknown]
  - Ureteric dilatation [Unknown]
  - Renal cyst [Unknown]
  - Product use in unapproved indication [Unknown]

NARRATIVE: CASE EVENT DATE: 20220924
